FAERS Safety Report 8452807-1 (Version None)
Quarter: 2012Q2

REPORT INFORMATION
  Report Type: 
  Country: None (occurrence: None)
  Receive Date: 20120620
  Receipt Date: 20120425
  Transmission Date: 20120825
  Serious: No
  Sender: FDA-Public Use
  Company Number: US-VERTEX PHARMACEUTICALS INC.-AE-2012-006120

PATIENT
  Sex: Female
  Weight: 79.45 kg

DRUGS (6)
  1. INCIVEK [Suspect]
     Route: 048
     Dates: start: 20120425
  2. RIBAVIRIN [Concomitant]
     Indication: HEPATITIS C
     Route: 048
     Dates: start: 20120404, end: 20120424
  3. RIBAVIRIN [Concomitant]
     Route: 048
     Dates: start: 20120425
  4. INCIVEK [Suspect]
     Indication: HEPATITIS C
     Route: 048
     Dates: start: 20120404, end: 20120424
  5. PEGASYS [Concomitant]
     Indication: HEPATITIS C
     Route: 058
     Dates: start: 20120404, end: 20120424
  6. PEGASYS [Concomitant]
     Route: 058
     Dates: start: 20120425

REACTIONS (8)
  - NAUSEA [None]
  - HEART RATE INCREASED [None]
  - PYREXIA [None]
  - HEADACHE [None]
  - INSOMNIA [None]
  - PRURITUS [None]
  - CHEST DISCOMFORT [None]
  - DECREASED APPETITE [None]
